FAERS Safety Report 16264659 (Version 2)
Quarter: 2019Q2

REPORT INFORMATION
  Report Type: Spontaneous
  Country: US (occurrence: US)
  Receive Date: 20190502
  Receipt Date: 20190522
  Transmission Date: 20190711
  Serious: No
  Sender: FDA-Public Use
  Company Number: US-PFIZER INC-2019182140

PATIENT
  Age: 72 Year
  Sex: Female

DRUGS (3)
  1. LODINE [Suspect]
     Active Substance: ETODOLAC
     Dosage: UNK
  2. DEMEROL [Suspect]
     Active Substance: MEPERIDINE HYDROCHLORIDE
     Dosage: UNK
  3. MUCINEX [Suspect]
     Active Substance: GUAIFENESIN
     Dosage: UNK

REACTIONS (1)
  - Drug hypersensitivity [Unknown]
